FAERS Safety Report 8853007 (Version 1)
Quarter: 2012Q4

REPORT INFORMATION
  Report Type: 
  Country: FR (occurrence: FR)
  Receive Date: 20121022
  Receipt Date: 20121022
  Transmission Date: 20130627
  Serious: Yes (Hospitalization)
  Sender: FDA-Public Use
  Company Number: FR-B.I. PHARMACEUTICALS,INC./RIDGEFIELD-2012-FF-01482FF

PATIENT
  Age: 73 Year
  Sex: Male

DRUGS (1)
  1. PRADAXA [Suspect]
     Indication: ATRIAL FIBRILLATION
     Route: 048
     Dates: start: 20120828, end: 20120905

REACTIONS (2)
  - Prothrombin time shortened [Recovered/Resolved]
  - Activated partial thromboplastin time prolonged [Recovered/Resolved]
